FAERS Safety Report 10985690 (Version 1)
Quarter: 2015Q2

REPORT INFORMATION
  Report Type: Spontaneous
  Country: US (occurrence: US)
  Receive Date: 20150404
  Receipt Date: 20150404
  Transmission Date: 20150821
  Serious: No
  Sender: FDA-Public Use
  Company Number: US-SA-2014SA037810

PATIENT
  Age: 33 Year
  Sex: Male
  Weight: 90.71 kg

DRUGS (2)
  1. ALLEGRA-D [Suspect]
     Active Substance: FEXOFENADINE\PSEUDOEPHEDRINE
     Route: 048
     Dates: start: 201403, end: 201403
  2. MUCINEX [Suspect]
     Active Substance: GUAIFENESIN
     Route: 065

REACTIONS (4)
  - Adverse event [Unknown]
  - Therapeutic response decreased [Unknown]
  - Dry mouth [Unknown]
  - Insomnia [Unknown]
